FAERS Safety Report 14448220 (Version 9)
Quarter: 2018Q4

REPORT INFORMATION
  Report Type: Report from Study
  Country: US (occurrence: US)
  Receive Date: 20180126
  Receipt Date: 20181217
  Transmission Date: 20190204
  Serious: Yes (Death, Hospitalization)
  Sender: FDA-Public Use
  Company Number: US-ACTELION-A-NJ2018-166330

PATIENT
  Age: 70 Year
  Sex: Male
  Weight: 105.21 kg

DRUGS (14)
  1. VELETRI [Suspect]
     Active Substance: EPOPROSTENOL
     Dosage: 4 NG/KG, PER MIN
     Route: 042
  2. MULTIVITAMIN [Concomitant]
     Active Substance: VITAMINS
  3. XARELTO [Concomitant]
     Active Substance: RIVAROXABAN
  4. ACYCLOVIR. [Concomitant]
     Active Substance: ACYCLOVIR
     Dosage: 400 MG, BID
     Route: 048
  5. FLUTICASONE. [Concomitant]
     Active Substance: FLUTICASONE
  6. OMEPRAZOLE. [Concomitant]
     Active Substance: OMEPRAZOLE
     Dosage: 20 MG, TID
  7. SILDENAFIL CITRATE. [Concomitant]
     Active Substance: SILDENAFIL CITRATE
  8. DARZALEX [Suspect]
     Active Substance: DARATUMUMAB
     Indication: PRODUCT USED FOR UNKNOWN INDICATION
     Route: 042
  9. ALLOPURINOL. [Concomitant]
     Active Substance: ALLOPURINOL
     Dosage: 100 MG, QD
     Route: 048
  10. FUROSEMIDE. [Concomitant]
     Active Substance: FUROSEMIDE
     Dosage: 40 MG, QD
  11. VELETRI [Suspect]
     Active Substance: EPOPROSTENOL
     Indication: PULMONARY HYPERTENSION
     Dosage: 16 NG/KG, PER MIN
     Route: 042
  12. CYANOCOBALAMIN. [Concomitant]
     Active Substance: CYANOCOBALAMIN
     Dosage: 500 MG, QD
     Route: 048
  13. TYLENOL EXTRA STRENGTH [Concomitant]
     Active Substance: ACETAMINOPHEN
     Dosage: 500 MG, Q6HRS
     Route: 048
  14. SODIUM CHLORIDE. [Concomitant]
     Active Substance: SODIUM CHLORIDE
     Dosage: 1 SPRAY BOTH NOSTRILS, Q 2HRS PRN FOR 30 DAYS
     Route: 045

REACTIONS (36)
  - Otitis media [Unknown]
  - Thrombocytopenia [Unknown]
  - Ear infection [Not Recovered/Not Resolved]
  - Epistaxis [Unknown]
  - Diabetes mellitus [Fatal]
  - Atrial septal defect repair [Unknown]
  - Dyspnoea exertional [Unknown]
  - Adjuvant therapy [Unknown]
  - Renal failure [Unknown]
  - Viral infection [Unknown]
  - Catheter management [Unknown]
  - Ear discomfort [Unknown]
  - Haemorrhage [Unknown]
  - Decreased appetite [Unknown]
  - Pulmonary arterial hypertension [Fatal]
  - Gout [Fatal]
  - Oxygen saturation decreased [Unknown]
  - Tremor [Unknown]
  - Diarrhoea [Not Recovered/Not Resolved]
  - Physical deconditioning [Unknown]
  - Weight decreased [Unknown]
  - Malaise [Unknown]
  - Plasma cell myeloma [Fatal]
  - Condition aggravated [Unknown]
  - Dyspnoea [Unknown]
  - Fluid overload [Unknown]
  - Pain in jaw [Unknown]
  - Platelet count decreased [Unknown]
  - Acute kidney injury [Fatal]
  - Ear haemorrhage [Unknown]
  - Catheter site haemorrhage [Recovered/Resolved]
  - Hypoacusis [Unknown]
  - Flushing [Not Recovered/Not Resolved]
  - Rales [Unknown]
  - Right ventricular failure [Fatal]
  - General physical health deterioration [Unknown]

NARRATIVE: CASE EVENT DATE: 20181010
